FAERS Safety Report 21946605 (Version 7)
Quarter: 2023Q2

REPORT INFORMATION
  Report Type: Report from Study
  Country: US (occurrence: None)
  Receive Date: 20230202
  Receipt Date: 20230501
  Transmission Date: 20230721
  Serious: Yes (Hospitalization)
  Sender: FDA-Public Use
  Company Number: US-ROCHE-3265322

PATIENT
  Age: 63 Year
  Sex: Female
  Weight: 51.3 kg

DRUGS (23)
  1. TIRAGOLUMAB [Suspect]
     Active Substance: TIRAGOLUMAB
     Indication: Hepatocellular carcinoma
     Dosage: ON 22/DEC/2022, SHE RECEIVED MOST RECENT DOSE OF TIRAGOLUMAB 600 MG PRIOR TO AE.
     Route: 042
     Dates: start: 20220211
  2. ATEZOLIZUMAB [Suspect]
     Active Substance: ATEZOLIZUMAB
     Indication: Hepatocellular carcinoma
     Dosage: ON 22/DEC/2022, SHE RECEIVED MOST RECENT DOSE OF ATEZOLIZUMAB 1200 MG PRIOR TO AE.
     Route: 041
     Dates: start: 20220211
  3. BEVACIZUMAB [Suspect]
     Active Substance: BEVACIZUMAB
     Indication: Hepatocellular carcinoma
     Dosage: ON 22/DEC/2022, SHE RECEIVED MOST RECENT DOSE OF BEVACIZUMAB 784.5 MG PRIOR TO AE.?DOSE LAST STUDY D
     Route: 042
     Dates: start: 20220211
  4. AMLODIPINE [Concomitant]
     Active Substance: AMLODIPINE BESYLATE
     Indication: Hypertension
     Route: 048
     Dates: start: 20211205
  5. OMEPRAZOLE [Concomitant]
     Active Substance: OMEPRAZOLE
     Indication: Gastrooesophageal reflux disease
     Route: 048
     Dates: start: 20210812
  6. OXYBUTYNIN [Concomitant]
     Active Substance: OXYBUTYNIN
     Indication: Hypertonic bladder
     Dates: start: 20211220
  7. ESTRADIOL [Concomitant]
     Active Substance: ESTRADIOL
     Indication: Uterine prolapse
     Dates: start: 20210621
  8. METHADONE HYDROCHLORIDE [Concomitant]
     Active Substance: METHADONE HYDROCHLORIDE
     Dates: start: 20211203
  9. TRIAMCINOLONE [Concomitant]
     Active Substance: TRIAMCINOLONE
     Indication: Rash
     Route: 061
     Dates: start: 20220411
  10. MYRBETRIQ [Concomitant]
     Active Substance: MIRABEGRON
     Indication: Hypertonic bladder
     Route: 048
     Dates: start: 20220621
  11. KEFLEX [Concomitant]
     Active Substance: CEPHALEXIN
     Indication: Urinary tract infection
     Route: 048
     Dates: start: 20220711
  12. CLOBETASOL [Concomitant]
     Active Substance: CLOBETASOL
     Indication: Pruritus
     Dosage: 1 OTHER
     Route: 061
     Dates: start: 20220621
  13. SENNA [Concomitant]
     Active Substance: SENNA LEAF\SENNOSIDES\SENNOSIDES A AND B
     Indication: Constipation
     Route: 048
     Dates: start: 20220905
  14. LACTULOSE [Concomitant]
     Active Substance: LACTULOSE
     Route: 048
     Dates: start: 20211026
  15. ATOVAQUONE [Concomitant]
     Active Substance: ATOVAQUONE
     Route: 048
     Dates: start: 20230123
  16. ATOVAQUONE [Concomitant]
     Active Substance: ATOVAQUONE
     Route: 048
     Dates: start: 20230127
  17. CITRIC ACID;SODIUM CITRATE [Concomitant]
     Route: 048
     Dates: start: 20230127, end: 20230206
  18. PREDNISONE [Concomitant]
     Active Substance: PREDNISONE
     Indication: Nephritis
     Route: 048
     Dates: start: 20230127, end: 20230203
  19. PREDNISONE [Concomitant]
     Active Substance: PREDNISONE
     Route: 048
     Dates: start: 20230204, end: 20230212
  20. PREDNISONE [Concomitant]
     Active Substance: PREDNISONE
     Dates: start: 20230213, end: 20230219
  21. PREDNISONE [Concomitant]
     Active Substance: PREDNISONE
     Dates: start: 20230220, end: 20230226
  22. PREDNISONE [Concomitant]
     Active Substance: PREDNISONE
     Dates: start: 20230227, end: 20230312
  23. PANTOPRAZOLE [Concomitant]
     Active Substance: PANTOPRAZOLE
     Indication: Gastrooesophageal reflux disease
     Route: 048
     Dates: start: 20230127, end: 20230215

REACTIONS (1)
  - Acute kidney injury [Recovered/Resolved]

NARRATIVE: CASE EVENT DATE: 20230113
